FAERS Safety Report 21322067 (Version 1)
Quarter: 2022Q3

REPORT INFORMATION
  Report Type: Report from Study
  Country: US (occurrence: US)
  Receive Date: 20220912
  Receipt Date: 20220912
  Transmission Date: 20221027
  Serious: Yes (Other)
  Sender: FDA-Public Use
  Company Number: US-EXELIXIS-CABO-22052951

PATIENT
  Sex: Male

DRUGS (2)
  1. CABOMETYX [Suspect]
     Active Substance: CABOZANTINIB S-MALATE
     Indication: Colon cancer
     Dosage: 40 MG, QD
     Route: 048
     Dates: start: 20220517
  2. OPDIVO [Concomitant]
     Active Substance: NIVOLUMAB

REACTIONS (2)
  - Brain oedema [Unknown]
  - Off label use [Unknown]
